FAERS Safety Report 6687876-2 (Version None)
Quarter: 2010Q2

REPORT INFORMATION
  Report Type: 
  Country: None (occurrence: None)
  Receive Date: 20100420
  Receipt Date: 20100329
  Transmission Date: 20101027
  Serious: Yes (Death, Hospitalization)
  Sender: FDA-Public Use
  Company Number: IT-BAYER-200825305GPV

PATIENT

DRUGS (14)
  1. MABCAMPATH [Suspect]
     Indication: PERIPHERAL T-CELL LYMPHOMA UNSPECIFIED
     Dosage: DAY 0 BEFORE THE SECOND CHOP CYCLE
     Route: 058
  2. MABCAMPATH [Suspect]
     Dosage: DOSE ESCALATION (0 BEFORE THE FIRST CHOP CYCLE)
     Route: 058
  3. MABCAMPATH [Suspect]
     Dosage: DOSE ESCALATION (-2 BEFORE THE FIRST CHOP CYCLE)
     Route: 058
     Dates: start: 20080502
  4. MABCAMPATH [Suspect]
     Dosage: DOSE ESCALATION (-1 BEFORE THE FIRST CHOP CYCLE)
     Route: 058
  5. PREDNISONE [Suspect]
     Indication: PERIPHERAL T-CELL LYMPHOMA UNSPECIFIED
     Dosage: DAYS 1-5
     Route: 048
  6. DOXORUBICIN HCL [Suspect]
     Indication: PERIPHERAL T-CELL LYMPHOMA UNSPECIFIED
     Dosage: DAY 1
  7. VINCRISTINE [Suspect]
     Indication: PERIPHERAL T-CELL LYMPHOMA UNSPECIFIED
     Dosage: DAY 1 (MAXIMUM 2.0MG)
  8. CYCLOPHOSPHAMIDE [Suspect]
     Indication: PERIPHERAL T-CELL LYMPHOMA UNSPECIFIED
     Dosage: DAY 1
  9. CYCLOPHOSPHAMIDE [Suspect]
     Dosage: EVERY 12 HOURS DAYS 2-3-4
  10. METHOTREXATE [Suspect]
     Indication: PERIPHERAL T-CELL LYMPHOMA UNSPECIFIED
     Dosage: LUMBAR PUNCTURE AT DAYS 1,21 DURING THE FIRST 2 CHOP-C CYCLES
     Route: 037
  11. METHOTREXATE [Suspect]
     Dosage: DAY 1
  12. ARA-C [Suspect]
     Indication: PERIPHERAL T-CELL LYMPHOMA UNSPECIFIED
     Dosage: LUMBAR PUNCTURE AT DAYS 1,21 DURING THE FIRST 2 CHOP-C CYCLES
     Route: 037
  13. DEXAMETHASONE [Suspect]
     Indication: PERIPHERAL T-CELL LYMPHOMA UNSPECIFIED
     Dosage: LUMBAR PUNCTURE AT DAYS 1,21 DURING THE FIRST 2 CHOP-C CYCLES
     Route: 037
  14. NEUPOGEN [Suspect]
     Indication: PERIPHERAL T-CELL LYMPHOMA UNSPECIFIED
     Dosage: 5 ?CG/KG/DAY STARTING FROM DAY +5 UNTILL STEM CELL HARVEST

REACTIONS (6)
  - MULTI-ORGAN FAILURE [None]
  - NEUTROPENIA [None]
  - PNEUMONIA [None]
  - PSEUDOMONAS INFECTION [None]
  - RESPIRATORY FAILURE [None]
  - SEPTIC SHOCK [None]
